FAERS Safety Report 5448975-6 (Version None)
Quarter: 2007Q3

REPORT INFORMATION
  Report Type: 
  Country: None (occurrence: None)
  Receive Date: 20070911
  Receipt Date: 20070831
  Transmission Date: 20080115
  Serious: Yes (Life-Threatening)
  Sender: FDA-Public Use
  Company Number: JP-ROCHE-487468

PATIENT
  Age: 12 Year
  Sex: Male
  Weight: 38 kg

DRUGS (3)
  1. TAMIFLU [Suspect]
     Route: 048
     Dates: start: 20070305, end: 20070306
  2. CALONAL [Concomitant]
     Dosage: GENERIC NAME REPORTED AS ACETAMINOPHEN.
     Route: 048
     Dates: start: 20070305, end: 20070305
  3. BANAN [Concomitant]
     Dosage: GENERIC NAME REPORTED AS CEFPODOXIME PROXETIL.
     Dates: start: 20070304, end: 20070304

REACTIONS (1)
  - ABNORMAL BEHAVIOUR [None]
